FAERS Safety Report 18414892 (Version 1)
Quarter: 2020Q4

REPORT INFORMATION
  Report Type: Spontaneous
  Country: JP (occurrence: JP)
  Receive Date: 20201022
  Receipt Date: 20201022
  Transmission Date: 20210114
  Serious: Yes (Death, Other)
  Sender: FDA-Public Use
  Company Number: JP-009507513-2004JPN001266

PATIENT
  Age: 69 Year
  Sex: Female

DRUGS (5)
  1. FIDAXOMICIN [Suspect]
     Active Substance: FIDAXOMICIN
     Dosage: 400 MG/DAY, UNKNOWN FREQ.
     Route: 048
     Dates: start: 20200408
  2. DOPAMINE [Concomitant]
     Active Substance: DOPAMINE HYDROCHLORIDE
     Dosage: UNK
  3. VANCOMYCIN [Concomitant]
     Active Substance: VANCOMYCIN
     Indication: CLOSTRIDIUM DIFFICILE INFECTION
     Dosage: UNK UNK, UNKNOWN FREQ.; PHARMACEUTICAL FORM: PER ORAL NOS
     Route: 048
  4. FLAGYL [Concomitant]
     Active Substance: METRONIDAZOLE\METRONIDAZOLE HYDROCHLORIDE
     Indication: CLOSTRIDIUM DIFFICILE INFECTION
     Dosage: 3500 UNK, UNKNOWN FREQ.
     Route: 065
  5. FIDAXOMICIN [Suspect]
     Active Substance: FIDAXOMICIN
     Indication: CLOSTRIDIUM DIFFICILE COLITIS
     Dosage: 400 MG/DAY, UNKNOWN FREQ.
     Route: 048

REACTIONS (3)
  - Clostridium difficile colitis [Unknown]
  - General physical health deterioration [Fatal]
  - Malnutrition [Fatal]

NARRATIVE: CASE EVENT DATE: 20200323
